FAERS Safety Report 4854962-9 (Version None)
Quarter: 2005Q4

REPORT INFORMATION
  Report Type: 
  Country: None (occurrence: None)
  Receive Date: 20051214
  Receipt Date: 20051130
  Transmission Date: 20060501
  Serious: Yes (Life-Threatening)
  Sender: FDA-Public Use
  Company Number: JP200512000214

PATIENT
  Age: 57 Year
  Sex: Female

DRUGS (3)
  1. TOBRACIN (TOBRAMYCIN SULFATE) VIAL [Suspect]
     Indication: BRONCHIOLITIS
     Dosage: 180 MG, OTHER, INHALATION
     Route: 055
     Dates: start: 20050925, end: 20051015
  2. ZITHROMAX [Concomitant]
  3. LANSOPRAZOLE [Concomitant]

REACTIONS (1)
  - GASTROENTERITIS STAPHYLOCOCCAL [None]
